FAERS Safety Report 13370971 (Version 1)
Quarter: 2017Q1

REPORT INFORMATION
  Report Type: Spontaneous
  Country: JP (occurrence: JP)
  Receive Date: 20170324
  Receipt Date: 20170324
  Transmission Date: 20170429
  Serious: Yes (Other)
  Sender: FDA-Public Use
  Company Number: PHJP2017JP009116

PATIENT
  Sex: Male

DRUGS (6)
  1. JANUVIA [Concomitant]
     Active Substance: SITAGLIPTIN PHOSPHATE
     Indication: DIABETES MELLITUS
     Dosage: UNK
     Route: 065
  2. DEPAS [Suspect]
     Active Substance: ETIZOLAM
     Indication: ANXIETY
  3. LESCOL [Suspect]
     Active Substance: FLUVASTATIN SODIUM
     Indication: DIABETES MELLITUS
     Dosage: UNK
     Route: 048
  4. DEPAS [Suspect]
     Active Substance: ETIZOLAM
     Indication: MUSCULOSKELETAL STIFFNESS
     Dosage: 0.5 MG, UNK
     Route: 048
  5. DEPAS [Suspect]
     Active Substance: ETIZOLAM
     Indication: BACK PAIN
     Dosage: 0.5 MG, UNK
     Route: 048
  6. NORVASC [Concomitant]
     Active Substance: AMLODIPINE BESYLATE
     Indication: HYPERTENSION
     Dosage: UNK
     Route: 065

REACTIONS (7)
  - Glycosylated haemoglobin increased [Unknown]
  - Muscular weakness [Unknown]
  - Heart rate increased [Unknown]
  - Atrial fibrillation [Unknown]
  - Dizziness [Not Recovered/Not Resolved]
  - Arrhythmia [Unknown]
  - Blood pressure increased [Unknown]
